FAERS Safety Report 22183355 (Version 2)
Quarter: 2023Q2

REPORT INFORMATION
  Report Type: Spontaneous
  Country: US (occurrence: US)
  Receive Date: 20230406
  Receipt Date: 20230425
  Transmission Date: 20230722
  Serious: No
  Sender: FDA-Public Use
  Company Number: US-ALLERGAN-2304767US

PATIENT
  Sex: Female

DRUGS (1)
  1. QULIPTA [Suspect]
     Active Substance: ATOGEPANT
     Indication: Product used for unknown indication
     Dosage: UNK
     Dates: start: 20210215

REACTIONS (4)
  - Incorrect dose administered [Unknown]
  - Vertigo [Recovering/Resolving]
  - Balance disorder [Recovering/Resolving]
  - Joint injury [Not Recovered/Not Resolved]
